FAERS Safety Report 8828724 (Version 1)
Quarter: 2012Q4

REPORT INFORMATION
  Report Type: 
  Country: US (occurrence: US)
  Receive Date: 20121008
  Receipt Date: 20121008
  Transmission Date: 20130627
  Serious: No
  Sender: FDA-Public Use
  Company Number: US-ASTRAZENECA-2012SE74667

PATIENT
  Age: 83 Year
  Sex: Female

DRUGS (1)
  1. ENTOCORT EC [Suspect]
     Route: 048

REACTIONS (4)
  - Enteritis infectious [Unknown]
  - Frequent bowel movements [Unknown]
  - Malaise [Unknown]
  - Drug dose omission [Unknown]
